FAERS Safety Report 5934924-0 (Version None)
Quarter: 2008Q4

REPORT INFORMATION
  Report Type: 
  Country: None (occurrence: None)
  Receive Date: 20081027
  Receipt Date: 20081020
  Transmission Date: 20090506
  Serious: Yes (Death, Other)
  Sender: FDA-Public Use
  Company Number: 2008JP005031

PATIENT
  Age: 52 Year
  Sex: Male

DRUGS (6)
  1. TACROLIMUS [Suspect]
     Indication: LIVER TRANSPLANT
  2. PREDNISONE [Suspect]
     Indication: LIVER TRANSPLANT
  3. CYCLOSPORINE [Concomitant]
  4. STEROID INJECTION [Concomitant]
  5. LAMIVUDINE [Concomitant]
  6. HEPATITIS B IMMUNOGLOBULIN (IMMUNOGLOBULIN ANTIHEPATITIS B) INJECTION [Concomitant]

REACTIONS (5)
  - BRAIN NEOPLASM [None]
  - DIFFUSE LARGE B-CELL LYMPHOMA [None]
  - HEPATITIS B [None]
  - MULTI-ORGAN FAILURE [None]
  - SEPSIS [None]
